FAERS Safety Report 19140825 (Version 3)
Quarter: 2021Q2

REPORT INFORMATION
  Report Type: Other
  Country: FR (occurrence: FR)
  Receive Date: 20210415
  Receipt Date: 20210428
  Transmission Date: 20210717
  Serious: Yes (Death)
  Sender: FDA-Public Use
  Company Number: FR-ROCHE-2807977

PATIENT
  Age: 51 Year
  Sex: Female

DRUGS (11)
  1. PREGABALIN. [Suspect]
     Active Substance: PREGABALIN
     Indication: DRUG ABUSE
  2. CODEINE [Suspect]
     Active Substance: CODEINE
     Indication: DRUG ABUSE
  3. COCAINE [Suspect]
     Active Substance: COCAINE
     Indication: DRUG ABUSE
     Route: 065
  4. CODEINE [Suspect]
     Active Substance: CODEINE
     Indication: SUBSTANCE USE
     Route: 065
  5. DIAZEPAM. [Suspect]
     Active Substance: DIAZEPAM
     Indication: SUBSTANCE USE
     Route: 065
  6. METHADONE [Suspect]
     Active Substance: METHADONE HYDROCHLORIDE
     Indication: DRUG ABUSE
  7. MORPHINE [Suspect]
     Active Substance: MORPHINE
     Indication: DRUG ABUSE
  8. METHADONE [Suspect]
     Active Substance: METHADONE HYDROCHLORIDE
     Indication: SUBSTANCE USE
     Route: 065
  9. PREGABALIN. [Suspect]
     Active Substance: PREGABALIN
     Indication: SUBSTANCE USE
     Route: 065
  10. MORPHINE [Suspect]
     Active Substance: MORPHINE
     Indication: SUBSTANCE USE
     Route: 065
  11. DIAZEPAM. [Suspect]
     Active Substance: DIAZEPAM
     Indication: DRUG ABUSE

REACTIONS (5)
  - Intentional product misuse [Fatal]
  - Respiratory depression [Fatal]
  - Asphyxia [Fatal]
  - Substance abuse [Fatal]
  - Drug interaction [Fatal]
